FAERS Safety Report 13911486 (Version 1)
Quarter: 2017Q3

REPORT INFORMATION
  Report Type: Spontaneous
  Country: US (occurrence: US)
  Receive Date: 20170828
  Receipt Date: 20170828
  Transmission Date: 20171127
  Serious: No
  Sender: FDA-Public Use
  Company Number: US-ROCHE-1142025

PATIENT
  Sex: Male
  Weight: 126.3 kg

DRUGS (18)
  1. SYNTHROID [Concomitant]
     Active Substance: LEVOTHYROXINE SODIUM
     Route: 065
  2. CARDIZEM CD [Concomitant]
     Active Substance: DILTIAZEM HYDROCHLORIDE
     Route: 048
  3. NUTROPIN AQ [Suspect]
     Active Substance: SOMATROPIN
     Indication: GROWTH HORMONE DEFICIENCY
     Dosage: 0.006 MG/KG/WK, 0.15 ML INJECTION VOLUME
     Route: 058
  4. MULTIPLE VITAMIN [Concomitant]
     Active Substance: VITAMINS
     Dosage: ONE DAILY
     Route: 065
  5. NITROGLYCERIN. [Concomitant]
     Active Substance: NITROGLYCERIN
     Route: 065
  6. IMDUR [Concomitant]
     Active Substance: ISOSORBIDE MONONITRATE
     Route: 048
  7. REZULIN [Concomitant]
     Active Substance: TROGLITAZONE
     Route: 048
  8. TOPROL XL [Concomitant]
     Active Substance: METOPROLOL SUCCINATE
     Route: 048
  9. RELAFEN [Concomitant]
     Active Substance: NABUMETONE
     Route: 048
  10. BUMEX [Concomitant]
     Active Substance: BUMETANIDE
     Route: 048
  11. GLYSET [Concomitant]
     Active Substance: MIGLITOL
     Dosage: AC
     Route: 065
  12. LIPITOR [Concomitant]
     Active Substance: ATORVASTATIN CALCIUM
     Route: 048
  13. AVAPRO [Concomitant]
     Active Substance: IRBESARTAN
     Route: 048
  14. KLOTRIX [Concomitant]
     Active Substance: POTASSIUM CHLORIDE
  15. CLARITIN [Concomitant]
     Active Substance: LORATADINE
     Route: 065
  16. ASPIRIN. [Concomitant]
     Active Substance: ASPIRIN
     Dosage: ONE
     Route: 048
  17. PRILOSEC [Concomitant]
     Active Substance: OMEPRAZOLE MAGNESIUM
     Route: 048
  18. PRANDIN [Concomitant]
     Active Substance: REPAGLINIDE
     Dosage: AC TID AND HS
     Route: 065

REACTIONS (6)
  - Muscle tightness [Unknown]
  - Fatigue [Unknown]
  - Blood glucose fluctuation [Unknown]
  - Musculoskeletal discomfort [Unknown]
  - Oedema peripheral [Unknown]
  - Periorbital oedema [Unknown]
